FAERS Safety Report 23467694 (Version 1)
Quarter: 2024Q1

REPORT INFORMATION
  Report Type: Spontaneous
  Country: CA (occurrence: CA)
  Receive Date: 20240201
  Receipt Date: 20240201
  Transmission Date: 20240410
  Serious: Yes (Life-Threatening, Hospitalization, Other)
  Sender: FDA-Public Use
  Company Number: CA-MLMSERVICE-20240116-4776044-1

PATIENT
  Age: 15 Year
  Sex: Female

DRUGS (1)
  1. ACETAMINOPHEN [Suspect]
     Active Substance: ACETAMINOPHEN
     Indication: Product used for unknown indication
     Dosage: 15 G
     Route: 048

REACTIONS (5)
  - Oliguria [Unknown]
  - International normalised ratio increased [Recovering/Resolving]
  - Blood creatinine increased [Unknown]
  - Intentional overdose [Unknown]
  - Acute hepatic failure [Recovering/Resolving]
